FAERS Safety Report 6219017-X (Version None)
Quarter: 2009Q2

REPORT INFORMATION
  Report Type: 
  Country: None (occurrence: None)
  Receive Date: 20090608
  Receipt Date: 20090602
  Transmission Date: 20091009
  Serious: Yes (Hospitalization, Other)
  Sender: FDA-Public Use
  Company Number: DE-PFIZER INC-2009202061

PATIENT

DRUGS (3)
  1. TAFIL [Suspect]
     Indication: PSYCHOTIC DISORDER
     Dosage: UNK
     Route: 048
  2. ZELDOX [Suspect]
     Dosage: 80 MG+ 40 MG/DAY
  3. CIPRALEX [Suspect]
     Dosage: 20 MG, 1X/DAY

REACTIONS (7)
  - ACUTE PSYCHOSIS [None]
  - DRUG DEPENDENCE [None]
  - DYSARTHRIA [None]
  - FATIGUE [None]
  - INDIFFERENCE [None]
  - MEDICATION ERROR [None]
  - MEMORY IMPAIRMENT [None]
